FAERS Safety Report 15559306 (Version 1)
Quarter: 2018Q4

REPORT INFORMATION
  Report Type: Spontaneous
  Country: FR (occurrence: FR)
  Receive Date: 20181029
  Receipt Date: 20181029
  Transmission Date: 20190205
  Serious: Yes (Hospitalization)
  Sender: FDA-Public Use
  Company Number: FR-TEVA-2018-FR-969500

PATIENT
  Age: 11 Month
  Sex: Female
  Weight: 9.7 kg

DRUGS (2)
  1. AMOXICILLINE [Suspect]
     Active Substance: AMOXICILLIN
     Indication: EAR INFECTION
     Dosage: 3 DOSAGE FORMS DAILY;
     Route: 048
     Dates: start: 20180531, end: 20180601
  2. CELESTENE 0,05 POUR CENT, SOLUTION BUVABLE EN GOUTTES [Suspect]
     Active Substance: BETAMETHASONE
     Indication: EAR INFECTION
     Dosage: 60 GTT DAILY;
     Route: 065
     Dates: start: 20180531, end: 20180601

REACTIONS (1)
  - Rash generalised [Recovered/Resolved]

NARRATIVE: CASE EVENT DATE: 20180601
